FAERS Safety Report 18969241 (Version 1)
Quarter: 2021Q1

REPORT INFORMATION
  Report Type: Report from Study
  Country: US (occurrence: US)
  Receive Date: 20210304
  Receipt Date: 20210304
  Transmission Date: 20210420
  Serious: No
  Sender: FDA-Public Use
  Company Number: NVSC2021US049652

PATIENT
  Sex: Male

DRUGS (2)
  1. ENTRESTO [Suspect]
     Active Substance: SACUBITRIL\VALSARTAN
     Indication: CARDIAC FAILURE CONGESTIVE
     Dosage: 50 MG (24/26 MG), BID
     Route: 048
     Dates: start: 20200925
  2. ENTRESTO [Suspect]
     Active Substance: SACUBITRIL\VALSARTAN
     Dosage: 1/2  TAB IN AM AND 1 TAB IN PM, BID
     Route: 048

REACTIONS (2)
  - Wrong technique in product usage process [Not Recovered/Not Resolved]
  - Prescribed underdose [Not Recovered/Not Resolved]
